FAERS Safety Report 20633680 (Version 1)
Quarter: 2022Q1

REPORT INFORMATION
  Report Type: Spontaneous
  Country: IT (occurrence: IT)
  Receive Date: 20220324
  Receipt Date: 20220324
  Transmission Date: 20220423
  Serious: Yes (Other)
  Sender: FDA-Public Use
  Company Number: None

PATIENT
  Age: 70 Year
  Sex: Male
  Weight: 79 kg

DRUGS (9)
  1. IRINOTECAN HYDROCHLORIDE [Suspect]
     Active Substance: IRINOTECAN HYDROCHLORIDE
     Indication: Adenocarcinoma of colon
     Dosage: 262 MG, CYCLIC
     Route: 042
     Dates: start: 20211207
  2. FLUOROURACIL [Suspect]
     Active Substance: FLUOROURACIL
     Indication: Adenocarcinoma of colon
     Dosage: 582 MG, CYCLIC
     Route: 040
     Dates: start: 20211207
  3. FLUOROURACIL [Suspect]
     Active Substance: FLUOROURACIL
     Indication: Adenocarcinoma of colon
     Dosage: 3492 MG, CYCLIC
     Route: 030
     Dates: start: 20211207
  4. AFLIBERCEPT [Suspect]
     Active Substance: AFLIBERCEPT
     Indication: Adenocarcinoma of colon
     Dosage: 312 MG, CYCLIC
     Route: 042
     Dates: start: 20211207
  5. ESOMEPRAZOLE KRKA [ESOMEPRAZOLE MAGNESIUM] [Concomitant]
     Dosage: UNK
  6. ATORVASTATINA EG [Concomitant]
     Dosage: UNK
  7. SILODOSIN [Concomitant]
     Active Substance: SILODOSIN
     Dosage: UNK
  8. ZOLOFT [Concomitant]
     Active Substance: SERTRALINE HYDROCHLORIDE
     Dosage: UNK
  9. ASPIRIN [Concomitant]
     Active Substance: ASPIRIN
     Dosage: UNK

REACTIONS (2)
  - Asthenia [Recovering/Resolving]
  - Neutropenia [Recovering/Resolving]

NARRATIVE: CASE EVENT DATE: 20211228
